FAERS Safety Report 20599858 (Version 1)
Quarter: 2022Q1

REPORT INFORMATION
  Report Type: Other
  Country: IT (occurrence: None)
  Receive Date: 20220316
  Receipt Date: 20220316
  Transmission Date: 20220423
  Serious: Yes (Hospitalization, Other)
  Sender: FDA-Public Use
  Company Number: IT-Saptalis Pharmaceuticals,LLC-000190

PATIENT
  Age: 43 Year
  Sex: Female

DRUGS (2)
  1. POTASSIUM CHLORIDE [Suspect]
     Active Substance: POTASSIUM CHLORIDE
     Indication: Ectopic pregnancy
     Route: 012
  2. METHOTREXATE [Suspect]
     Active Substance: METHOTREXATE
     Indication: Ectopic pregnancy
     Dosage: 65 MG
     Route: 030

REACTIONS (5)
  - Exposure during pregnancy [Recovered/Resolved]
  - Disease recurrence [Recovered/Resolved]
  - Vaginal haemorrhage [Recovered/Resolved]
  - Treatment failure [Recovered/Resolved]
  - Haemoglobin decreased [Recovered/Resolved]
